FAERS Safety Report 23798273 (Version 3)
Quarter: 2024Q2

REPORT INFORMATION
  Report Type: Spontaneous
  Country: US (occurrence: US)
  Receive Date: 20240430
  Receipt Date: 20240521
  Transmission Date: 20240716
  Serious: Yes (Other)
  Sender: FDA-Public Use
  Company Number: US-MYLANLABS-2024M1038331

PATIENT
  Age: 79 Year
  Sex: Female
  Weight: 63.5 kg

DRUGS (5)
  1. LATANOPROST [Suspect]
     Active Substance: LATANOPROST
     Indication: Glaucoma
     Dosage: 50 MICROGRAM, QD (ONE ON BOTH EYES AT BEDTIME)
     Route: 047
     Dates: start: 20240315, end: 20240403
  2. COMBIGAN [Concomitant]
     Active Substance: BRIMONIDINE TARTRATE\TIMOLOL MALEATE
     Indication: Glaucoma
     Dosage: UNK, BID(TO EACH EYE TWO TIMES A DAY)
     Route: 065
  3. JARDIANCE [Concomitant]
     Active Substance: EMPAGLIFLOZIN
     Indication: Type 2 diabetes mellitus
     Dosage: 25 MILLIGRAM (DAILY)
     Route: 065
  4. NORVASC [Concomitant]
     Active Substance: AMLODIPINE BESYLATE
     Indication: Hypertension
     Dosage: 5 MILLIGRAM (DAILY)
     Route: 065
  5. LOSARTAN [Concomitant]
     Active Substance: LOSARTAN
     Indication: Hypertension
     Dosage: 50 MILLIGRAM (DAILY)
     Route: 065

REACTIONS (12)
  - Blindness [Unknown]
  - Chemical burns of eye [Unknown]
  - Swelling [Unknown]
  - Corneal abrasion [Recovering/Resolving]
  - Eye infection [Unknown]
  - Eye swelling [Unknown]
  - Lacrimation increased [Not Recovered/Not Resolved]
  - Scleral disorder [Unknown]
  - Photophobia [Unknown]
  - Eye pain [Not Recovered/Not Resolved]
  - Nausea [Unknown]
  - Eye irritation [Not Recovered/Not Resolved]

NARRATIVE: CASE EVENT DATE: 20240401
